FAERS Safety Report 8799897 (Version 1)
Quarter: 2012Q4

REPORT INFORMATION
  Report Type: 
  Country: US (occurrence: US)
  Receive Date: 20120919
  Receipt Date: 20120919
  Transmission Date: 20130627
  Serious: Yes (Other)
  Sender: FDA-Public Use
  Company Number: US-009507513-1209USA005780

PATIENT

DRUGS (2)
  1. SAPHRIS [Suspect]
  2. HALDOL [Suspect]

REACTIONS (2)
  - Tardive dyskinesia [Unknown]
  - Weight increased [Unknown]
